FAERS Safety Report 17236707 (Version 1)
Quarter: 2019Q4

REPORT INFORMATION
  Report Type: Spontaneous
  Country: US (occurrence: US)
  Receive Date: 20191211
  Receipt Date: 20191211
  Transmission Date: 20200122
  Serious: No
  Sender: FDA-Public Use
  Company Number: None

PATIENT
  Age: 43 Year
  Sex: Female

DRUGS (1)
  1. GILENYA [Suspect]
     Active Substance: FINGOLIMOD HYDROCHLORIDE
     Indication: SPINAL CORD DISORDER
     Route: 048
     Dates: start: 20170822

REACTIONS (1)
  - Oropharyngeal pain [None]

NARRATIVE: CASE EVENT DATE: 201911
